FAERS Safety Report 21465163 (Version 1)
Quarter: 2022Q4

REPORT INFORMATION
  Report Type: Report from Study
  Country: US (occurrence: US)
  Receive Date: 20221017
  Receipt Date: 20221017
  Transmission Date: 20230113
  Serious: No
  Sender: FDA-Public Use
  Company Number: US-ABBVIE-4144411

PATIENT
  Sex: Male

DRUGS (8)
  1. IMBRUVICA [Suspect]
     Active Substance: IBRUTINIB
     Indication: B-cell small lymphocytic lymphoma
     Route: 048
     Dates: start: 20220328
  2. Folic Acid Oral Tablet 1 MG [Concomitant]
     Indication: Product used for unknown indication
  3. Losartan Potassium Oral Tablet 50 M [Concomitant]
     Indication: Product used for unknown indication
  4. metFORMIN HCl Oral Tablet 1000 MG [Concomitant]
     Indication: Product used for unknown indication
  5. hydroCHLOROthiazide Oral Tablet 50 [Concomitant]
     Indication: Product used for unknown indication
  6. Lexapro Oral Tablet 10 MG [Concomitant]
     Indication: Product used for unknown indication
  7. Tamsulosin HCl Oral Capsule 0.4 MG [Concomitant]
     Indication: Product used for unknown indication
  8. Flonase Allergy Relief Nasal Suspen [Concomitant]
     Indication: Product used for unknown indication

REACTIONS (3)
  - Palpitations [Not Recovered/Not Resolved]
  - Myalgia [Not Recovered/Not Resolved]
  - Arthralgia [Unknown]

NARRATIVE: CASE EVENT DATE: 20220101
